FAERS Safety Report 5232496-X (Version None)
Quarter: 2007Q1

REPORT INFORMATION
  Report Type: 
  Country: None (occurrence: None)
  Receive Date: 20070206
  Receipt Date: 20070206
  Transmission Date: 20070707
  Serious: Yes (Life-Threatening)
  Sender: FDA-Public Use
  Company Number: None

PATIENT
  Age: 91 Year
  Sex: Female
  Weight: 72.6 kg

DRUGS (3)
  1. ZOSYN [Suspect]
     Indication: LOCALISED INFECTION
     Dosage: ZOSYN 4.5 GM ONE DOSE IV
     Route: 042
  2. ATACAND [Concomitant]
  3. TIMOLOL MALEATE [Concomitant]

REACTIONS (1)
  - ANAPHYLACTIC REACTION [None]
